FAERS Safety Report 5141328-X (Version None)
Quarter: 2006Q4

REPORT INFORMATION
  Report Type: 
  Country: None (occurrence: None)
  Receive Date: 20061101
  Receipt Date: 20061026
  Transmission Date: 20070319
  Serious: Yes (Other)
  Sender: FDA-Public Use
  Company Number: US-BRISTOL-MYERS SQUIBB COMPANY-13558846

PATIENT
  Age: 70 Year
  Sex: Female

DRUGS (4)
  1. FOSINOPRIL SODIUM [Suspect]
     Indication: ESSENTIAL HYPERTENSION
     Route: 048
  2. FUROSEMIDE [Suspect]
     Indication: PULMONARY CONGESTION
     Dates: start: 20040520, end: 20040524
  3. ASPIRIN [Suspect]
     Indication: PROPHYLAXIS
     Route: 048
     Dates: start: 20040520
  4. METOPROLOL TARTRATE [Concomitant]
     Indication: ESSENTIAL HYPERTENSION

REACTIONS (1)
  - RENAL FAILURE ACUTE [None]
